FAERS Safety Report 23498793 (Version 1)
Quarter: 2024Q1

REPORT INFORMATION
  Report Type: Other
  Country: IN (occurrence: IN)
  Receive Date: 20240208
  Receipt Date: 20240208
  Transmission Date: 20240409
  Serious: Yes (Other)
  Sender: FDA-Public Use
  Company Number: IN-DEXPHARM-20240244

PATIENT
  Age: 22 Year
  Sex: Female

DRUGS (2)
  1. PANTOPRAZOLE [Suspect]
     Active Substance: PANTOPRAZOLE
     Indication: Gastritis
     Dosage: 80 MG DAILY FOR THE LAST THREE YEARS
  2. PANTOPRAZOLE [Suspect]
     Active Substance: PANTOPRAZOLE
     Indication: Gastritis
     Dosage: PRESCRIBED 40 MG OF PANTOPRAZOLE ONCE DAILY INITIALLY FOR TWO WEEKS

REACTIONS (2)
  - Toxic optic neuropathy [Unknown]
  - Incorrect dose administered [Recovered/Resolved]
